FAERS Safety Report 6370953-3 (Version None)
Quarter: 2009Q3

REPORT INFORMATION
  Report Type: 
  Country: None (occurrence: None)
  Receive Date: 20090923
  Receipt Date: 20071116
  Transmission Date: 20100115
  Serious: Yes (Hospitalization, Other)
  Sender: FDA-Public Use
  Company Number: US-ASTRAZENECA-2006UW23108

PATIENT
  Age: 523 Month
  Sex: Female
  Weight: 124.3 kg

DRUGS (28)
  1. SEROQUEL [Suspect]
     Indication: BIPOLAR DISORDER
     Dosage: 25 - 400 MG, FLUCTUATING, INTERMITTENT
     Route: 048
     Dates: start: 20001001
  2. SEROQUEL [Suspect]
     Indication: DEPRESSION
     Dosage: 25 - 400 MG, FLUCTUATING, INTERMITTENT
     Route: 048
     Dates: start: 20001001
  3. SEROQUEL [Suspect]
     Indication: FORMICATION
     Dosage: 25 - 400 MG, FLUCTUATING, INTERMITTENT
     Route: 048
     Dates: start: 20001001
  4. SEROQUEL [Suspect]
     Indication: AFFECTIVE DISORDER
     Dosage: 25 - 400 MG, FLUCTUATING, INTERMITTENT
     Route: 048
     Dates: start: 20001001
  5. SEROQUEL [Suspect]
     Indication: SLEEP DISORDER
     Dosage: 25 - 400 MG, FLUCTUATING, INTERMITTENT
     Route: 048
     Dates: start: 20001001
  6. SEROQUEL [Suspect]
     Dosage: 200-300 MG
     Route: 048
     Dates: start: 20000101, end: 20050801
  7. SEROQUEL [Suspect]
     Dosage: 200-300 MG
     Route: 048
     Dates: start: 20000101, end: 20050801
  8. SEROQUEL [Suspect]
     Dosage: 200-300 MG
     Route: 048
     Dates: start: 20000101, end: 20050801
  9. SEROQUEL [Suspect]
     Dosage: 200-300 MG
     Route: 048
     Dates: start: 20000101, end: 20050801
  10. SEROQUEL [Suspect]
     Dosage: 200-300 MG
     Route: 048
     Dates: start: 20000101, end: 20050801
  11. ABILIFY (ARIPIPARAZOLE) [Concomitant]
  12. TOPAMAX [Concomitant]
     Route: 048
  13. TOPAMAX [Concomitant]
     Route: 048
     Dates: start: 20040105
  14. TRILEPTAL [Concomitant]
     Route: 048
  15. TRILEPTAL [Concomitant]
     Dosage: 150 - 600 MG, FLUCTUATING
     Route: 048
     Dates: start: 20041026
  16. LEXAPRO [Concomitant]
  17. KLONOPIN [Concomitant]
  18. KOZERAM [Concomitant]
  19. SERZONE [Concomitant]
     Indication: DEPRESSION
     Dosage: 200 - 300 MG
     Route: 048
     Dates: start: 20001001
  20. LIBRIUM [Concomitant]
     Indication: ANXIETY
     Route: 048
     Dates: start: 20001001
  21. AMBIEN [Concomitant]
     Route: 048
     Dates: start: 20040105
  22. PROPRANOLOL [Concomitant]
     Indication: ANXIETY
     Dosage: 60 - 180 MG
     Route: 048
     Dates: start: 20040412
  23. HALDOL [Concomitant]
     Indication: AGITATION
     Route: 048
     Dates: start: 20041129
  24. COGENTIN [Concomitant]
     Dosage: 1 - 2 MG
     Route: 048
     Dates: start: 20010101
  25. XANAX [Concomitant]
     Dosage: 0.25 - 2 MG, FLUCTUATING
     Route: 048
     Dates: start: 19930514
  26. LAMICTAL [Concomitant]
     Dosage: 25 - 300 MG, FLUCTUATING
     Route: 048
     Dates: start: 20030807
  27. ZESTRIL [Concomitant]
     Route: 048
     Dates: start: 20020422
  28. NEURONTIN [Concomitant]
     Indication: AFFECTIVE DISORDER
     Dosage: 600 - 1200 MG, FLUCTUATING
     Route: 048
     Dates: start: 20020418

REACTIONS (2)
  - PANCREATITIS [None]
  - PANCREATITIS ACUTE [None]
